FAERS Safety Report 7324212-2 (Version None)
Quarter: 2011Q1

REPORT INFORMATION
  Report Type: 
  Country: None (occurrence: None)
  Receive Date: 20110202
  Receipt Date: 20101112
  Transmission Date: 20110831
  Serious: No
  Sender: FDA-Public Use
  Company Number: 2010-14875

PATIENT
  Age: 55 Year
  Sex: Male
  Weight: 122.4 kg

DRUGS (1)
  1. RAPAFLO [Suspect]
     Indication: POLLAKIURIA
     Dosage: 8 MG, DAILY, ORAL
     Route: 048
     Dates: start: 20101106

REACTIONS (4)
  - NASAL CONGESTION [None]
  - RETROGRADE EJACULATION [None]
  - EJACULATION FAILURE [None]
  - ORGASM ABNORMAL [None]
